FAERS Safety Report 7352568-3 (Version None)
Quarter: 2011Q1

REPORT INFORMATION
  Report Type: 
  Country: None (occurrence: None)
  Receive Date: 20110301
  Receipt Date: 20101206
  Transmission Date: 20110831
  Serious: Yes (Disabling, Other)
  Sender: FDA-Public Use
  Company Number: ALA_01614_2011

PATIENT
  Sex: Female
  Weight: 52.1637 kg

DRUGS (74)
  1. REGLAN [Suspect]
     Indication: NAUSEA
     Dosage: (10 MG)
     Dates: start: 19810101, end: 20090501
  2. REGLAN [Suspect]
     Indication: GASTROOESOPHAGEAL REFLUX DISEASE
     Dosage: (10 MG)
     Dates: start: 19810101, end: 20090501
  3. LIMBITROL /00164901/ [Concomitant]
  4. INDERAL LA [Concomitant]
  5. NADOLOL [Concomitant]
  6. TOPAMAX [Concomitant]
  7. RANITIDINE [Concomitant]
  8. ZOLPIDEM [Concomitant]
  9. TRANXENE [Concomitant]
  10. TALACEN [Concomitant]
  11. DESIPRAMINE HYDROCHLORIDE [Concomitant]
  12. CELEBREX [Concomitant]
  13. NICOTROL [Concomitant]
  14. BAYCOL [Concomitant]
  15. LIPITOR [Concomitant]
  16. NIASPAN [Concomitant]
  17. GLYCOLAX [Concomitant]
  18. CEFUROXIME [Concomitant]
  19. DIETARY SUPPLEMENT [Concomitant]
  20. PREVACID [Concomitant]
  21. SUCRALFATE [Concomitant]
  22. NORTRIPTYLINE [Concomitant]
  23. ONE TOUCH STRIPS TEST [Concomitant]
  24. ACTONEL [Concomitant]
  25. SINGULAIR [Concomitant]
  26. TRAMADOL [Concomitant]
  27. ADVAIR DISKUS 100/50 [Concomitant]
  28. ACTOPLUS MET [Concomitant]
  29. ENTOCORT EC [Concomitant]
  30. TRICYCLIC ANTIDEPRESSANTS [Concomitant]
  31. HYOSCYAMINE SULFATE [Concomitant]
  32. CARISOPRODOL [Concomitant]
  33. PROPRANOLOL [Concomitant]
  34. VIOXX [Concomitant]
  35. ULTRAVATE /01186802/ [Concomitant]
  36. GLUCOPHAGE [Concomitant]
  37. ALLEGRA-D /01367401/ [Concomitant]
  38. PREDNISONE [Concomitant]
  39. NEXIUM [Concomitant]
  40. ASMANEX TWISTHALER [Concomitant]
  41. CIMETIDINE [Concomitant]
  42. BACLOFEN [Concomitant]
  43. DICYCLOMINE [Concomitant]
  44. DOVONEX [Concomitant]
  45. ACETAMINOPHEN AND HYDROCODONE BITARTRATE [Concomitant]
  46. DEPAKOTE ER [Concomitant]
  47. METFORMIN [Concomitant]
  48. MORPHINE SULFATE [Concomitant]
  49. FLUCONAZOLE [Concomitant]
  50. AMITRIPTYLINE [Concomitant]
  51. CISAPRIDE [Concomitant]
  52. PROMETHAZINE [Concomitant]
  53. IMITREX [Concomitant]
  54. ZLPRAZOLAM [Concomitant]
  55. REQUIP [Concomitant]
  56. FORADIL [Concomitant]
  57. CRESTOR [Concomitant]
  58. DIPHENHYDRAMINE [Concomitant]
  59. OTC APPETITE SUPPRESSANTS [Concomitant]
  60. URECHOLINE [Concomitant]
  61. PROTONIX [Concomitant]
  62. ESTRADIOL [Concomitant]
  63. COMBIVENT [Concomitant]
  64. ACTOS [Concomitant]
  65. NYSTATIN [Concomitant]
  66. OMEPRAZOLE [Concomitant]
  67. PROCHLORPERAZINE [Concomitant]
  68. DURADRIN [Concomitant]
  69. ESTRATEST [Concomitant]
  70. ZYRTEC-D 12HR [Concomitant]
  71. ULTRACET [Concomitant]
  72. EVISTA [Concomitant]
  73. MORPHINE [Concomitant]
  74. DESIPRAMIDE HCL [Concomitant]

REACTIONS (4)
  - TARDIVE DYSKINESIA [None]
  - DYSKINESIA [None]
  - FORMICATION [None]
  - AKATHISIA [None]
